FAERS Safety Report 6967657-2 (Version None)
Quarter: 2010Q3

REPORT INFORMATION
  Report Type: 
  Country: None (occurrence: None)
  Receive Date: 20100907
  Receipt Date: 20100825
  Transmission Date: 20110219
  Serious: No
  Sender: FDA-Public Use
  Company Number: US-PFIZER INC-2010089342

PATIENT
  Sex: Female
  Weight: 91 kg

DRUGS (2)
  1. CLEOCIN [Suspect]
     Indication: VAGINITIS BACTERIAL
     Dosage: 100 MG, UNK
     Route: 067
     Dates: start: 20100628, end: 20100630
  2. LOTREL [Concomitant]
     Indication: HYPERTENSION
     Dosage: UNK

REACTIONS (4)
  - DRUG INEFFECTIVE [None]
  - PRODUCT QUALITY ISSUE [None]
  - VAGINAL MUCOSAL BLISTERING [None]
  - VULVOVAGINAL BURNING SENSATION [None]
